FAERS Safety Report 18281469 (Version 1)
Quarter: 2020Q3

REPORT INFORMATION
  Report Type: Spontaneous
  Country: US (occurrence: US)
  Receive Date: 20200917
  Receipt Date: 20200917
  Transmission Date: 20201103
  Serious: No
  Sender: FDA-Public Use
  Company Number: None

PATIENT
  Age: 55 Year
  Sex: Female
  Weight: 81.09 kg

DRUGS (8)
  1. DEXAMETHASONE 4MG [Concomitant]
     Active Substance: DEXAMETHASONE
  2. CARBOPLATIN 150MG/15ML [Concomitant]
     Active Substance: CARBOPLATIN
  3. KEYTRUDA [Concomitant]
     Active Substance: PEMBROLIZUMAB
  4. LISINOPRIL 10MG [Concomitant]
     Active Substance: LISINOPRIL
  5. AKYNZEO [Suspect]
     Active Substance: NETUPITANT\PALONOSETRON HYDROCHLORIDE
     Indication: DEATH
     Dosage: ?          OTHER FREQUENCY:ONCE EVERY 21 DAYS;?
     Route: 042
     Dates: start: 20200323
  6. ABRAXANE 100MG [Concomitant]
  7. NAMENDA 10MG [Concomitant]
  8. ALBUTEORL 90MCG [Concomitant]

REACTIONS (1)
  - Disease progression [None]

NARRATIVE: CASE EVENT DATE: 20200917
